FAERS Safety Report 16535668 (Version 3)
Quarter: 2019Q3

REPORT INFORMATION
  Report Type: Spontaneous
  Country: JP (occurrence: JP)
  Receive Date: 20190705
  Receipt Date: 20190807
  Transmission Date: 20191004
  Serious: Yes (Other)
  Sender: FDA-Public Use
  Company Number: JP-GLAXOSMITHKLINE-JP2019121079

PATIENT
  Age: 39 Year
  Sex: Male

DRUGS (2)
  1. TALION (BEPOTASTINE BESILATE) [Suspect]
     Active Substance: BEPOTASTINE BESYLATE
     Indication: ALOPECIA AREATA
     Dosage: 10 MG, BID
     Route: 048
     Dates: start: 201208, end: 201805
  2. VOLTAREN [Suspect]
     Active Substance: DICLOFENAC SODIUM
     Indication: HEADACHE
     Dosage: UNK, BID
     Route: 048
     Dates: start: 201904, end: 201904

REACTIONS (3)
  - Alopecia areata [Not Recovered/Not Resolved]
  - Concomitant disease aggravated [Not Recovered/Not Resolved]
  - Alopecia totalis [Not Recovered/Not Resolved]

NARRATIVE: CASE EVENT DATE: 20190423
